FAERS Safety Report 4906145-1 (Version None)
Quarter: 2006Q1

REPORT INFORMATION
  Report Type: 
  Country: None (occurrence: None)
  Receive Date: 20060207
  Receipt Date: 20060207
  Transmission Date: 20060701
  Serious: Yes (Hospitalization)
  Sender: FDA-Public Use
  Company Number: None

PATIENT
  Age: 78 Year
  Sex: Male
  Weight: 85.2762 kg

DRUGS (10)
  1. ENALAPRIL [Suspect]
     Indication: DIABETES MELLITUS
     Dosage: 10 MG DAILY
     Dates: start: 20051012, end: 20051028
  2. ENALAPRIL [Suspect]
     Indication: HYPERTENSION
     Dosage: 10 MG DAILY
     Dates: start: 20051012, end: 20051028
  3. ENALAPRIL [Suspect]
     Indication: DIABETES MELLITUS
     Dosage: 10 MG DAILY
     Dates: start: 20030901
  4. ENALAPRIL [Suspect]
     Indication: HYPERTENSION
     Dosage: 10 MG DAILY
     Dates: start: 20030901
  5. ATENOLOL [Concomitant]
  6. SIMVASTATIN [Concomitant]
  7. ACCU-CHEK COMFORT CV [Concomitant]
  8. PSYLLIUM [Concomitant]
  9. THIAMINE HCL [Concomitant]
  10. MULTIVITAMIN/MINER THERAPEUT [Concomitant]

REACTIONS (1)
  - RENAL FAILURE ACUTE [None]
